FAERS Safety Report 8220392-5 (Version None)
Quarter: 2012Q1

REPORT INFORMATION
  Report Type: 
  Country: None (occurrence: None)
  Receive Date: 20120320
  Receipt Date: 20120309
  Transmission Date: 20120608
  Serious: Yes (Hospitalization)
  Sender: FDA-Public Use
  Company Number: US-JNJFOC-20120305469

PATIENT
  Age: 75 Year
  Sex: Male

DRUGS (2)
  1. XARELTO [Suspect]
     Indication: THROMBOSIS PROPHYLAXIS
     Route: 048
     Dates: start: 20120201, end: 20120201
  2. XARELTO [Suspect]
     Indication: KNEE ARTHROPLASTY
     Route: 048
     Dates: start: 20120201, end: 20120201

REACTIONS (2)
  - PULMONARY EMBOLISM [None]
  - THROMBOSIS [None]
